FAERS Safety Report 16964849 (Version 3)
Quarter: 2020Q1

REPORT INFORMATION
  Report Type: Spontaneous
  Country: US (occurrence: US)
  Receive Date: 20191028
  Receipt Date: 20200102
  Transmission Date: 20200409
  Serious: Yes (Other)
  Sender: FDA-Public Use
  Company Number: US-AUROBINDO-AUR-APL-2019-067846

PATIENT
  Age: 68 Year
  Sex: Male
  Weight: 104 kg

DRUGS (1)
  1. VALSARTAN. [Suspect]
     Active Substance: VALSARTAN
     Indication: BLOOD PRESSURE MEASUREMENT
     Dosage: UNK, ONCE A DAY
     Route: 048

REACTIONS (7)
  - Product use issue [Unknown]
  - Product size issue [Unknown]
  - Product solubility abnormal [Unknown]
  - Drug ineffective [Unknown]
  - Hypertension [Unknown]
  - Condition aggravated [Unknown]
  - Wrong technique in product usage process [Unknown]
